FAERS Safety Report 6395265-3 (Version None)
Quarter: 2009Q4

REPORT INFORMATION
  Report Type: 
  Country: None (occurrence: None)
  Receive Date: 20091009
  Receipt Date: 20091005
  Transmission Date: 20100525
  Serious: Yes (Hospitalization)
  Sender: FDA-Public Use
  Company Number: A0761666A

PATIENT
  Age: 72 Year
  Sex: Male

DRUGS (3)
  1. AVANDIA [Suspect]
     Dosage: 8MG PER DAY
     Route: 048
     Dates: start: 20000101
  2. ALTACE [Concomitant]
  3. VYTORIN [Concomitant]

REACTIONS (5)
  - BLOOD GLUCOSE FLUCTUATION [None]
  - CATARACT [None]
  - EYELID INFECTION [None]
  - RETINAL TEAR [None]
  - VISUAL ACUITY REDUCED [None]
